FAERS Safety Report 7091932-7 (Version None)
Quarter: 2010Q4

REPORT INFORMATION
  Report Type: 
  Country: None (occurrence: None)
  Receive Date: 20101101
  Receipt Date: 20101019
  Transmission Date: 20110411
  Serious: Yes (Other)
  Sender: FDA-Public Use
  Company Number: ACO_01680_2010

PATIENT
  Sex: Male
  Weight: 90.7194 kg

DRUGS (4)
  1. AMPYRA [Suspect]
     Indication: GAIT DISTURBANCE
     Dosage: (1 DF BID), (1 DF BID ORAL)
     Route: 048
     Dates: start: 20100713, end: 20100805
  2. AMPYRA [Suspect]
     Indication: GAIT DISTURBANCE
     Dosage: (1 DF BID), (1 DF BID ORAL)
     Route: 048
     Dates: start: 20100913, end: 20101004
  3. IV STEROID [Suspect]
     Dosage: (3 DAY COURSE INTRAVENOUS)
     Route: 042
     Dates: start: 20100729
  4. BACLOFEN [Concomitant]

REACTIONS (13)
  - ACTIVITIES OF DAILY LIVING IMPAIRED [None]
  - BURNING SENSATION [None]
  - CONDITION AGGRAVATED [None]
  - DYSURIA [None]
  - GAIT DISTURBANCE [None]
  - HYPOAESTHESIA [None]
  - INSOMNIA [None]
  - MUSCLE SPASMS [None]
  - NERVE INJURY [None]
  - NEURALGIA [None]
  - PAIN IN EXTREMITY [None]
  - PARAESTHESIA [None]
  - RENAL PAIN [None]
